FAERS Safety Report 4893188-X (Version None)
Quarter: 2005Q4

REPORT INFORMATION
  Report Type: 
  Country: None (occurrence: None)
  Receive Date: 20051223
  Receipt Date: 20050901
  Transmission Date: 20060501
  Serious: No
  Sender: FDA-Public Use
  Company Number: 2005PV001663

PATIENT
  Age: 52 Year
  Sex: Female
  Weight: 72.5755 kg

DRUGS (4)
  1. SYMLIN [Suspect]
     Indication: INSULIN-REQUIRING TYPE II DIABETES MELLITUS
     Dosage: 60 MCG;TID;SC
     Route: 058
     Dates: start: 20050701
  2. LANTUS [Concomitant]
  3. HUMALOG [Concomitant]
  4. SYNTHROID [Concomitant]

REACTIONS (2)
  - DECREASED APPETITE [None]
  - INJECTION SITE PAIN [None]
